FAERS Safety Report 17224836 (Version 1)
Quarter: 2020Q1

REPORT INFORMATION
  Report Type: Spontaneous
  Country: IT (occurrence: IT)
  Receive Date: 20200102
  Receipt Date: 20200102
  Transmission Date: 20200409
  Serious: Yes (Other)
  Sender: FDA-Public Use
  Company Number: IT-MYLANLABS-2019M1132006

PATIENT
  Age: 68 Year
  Sex: Female

DRUGS (14)
  1. TEMOZOLOMIDE. [Suspect]
     Active Substance: TEMOZOLOMIDE
     Indication: NEUROENDOCRINE BREAST TUMOUR
     Dosage: 200 MILLIGRAM/SQ. METER, ONCE DAILY, DAY 10-14, EVERY 28 DAYS FOR 4 CYCLES
     Route: 048
     Dates: start: 201504, end: 2015
  2. TEMOZOLOMIDE. [Suspect]
     Active Substance: TEMOZOLOMIDE
     Indication: METASTASES TO LUNG
  3. CAPECITABINE. [Suspect]
     Active Substance: CAPECITABINE
     Indication: METASTASES TO LUNG
     Dosage: UNK
  4. CAPECITABINE. [Suspect]
     Active Substance: CAPECITABINE
     Indication: METASTASES TO LIVER
     Dosage: 50% DOSE REDUCTION (1000 MILLIGRAM/SQ. METER, ONCE DAILY, DAY 1-14, EVERY 28 DAYS)
     Route: 048
     Dates: start: 2015, end: 201601
  5. CAPECITABINE. [Suspect]
     Active Substance: CAPECITABINE
     Indication: METASTASES TO LYMPH NODES
     Dosage: 2000 MILLIGRAM/SQ. METER, DAILY, DAY 1-14, EVERY 28 DAYS FOR 4 CYCLES
     Route: 048
     Dates: start: 201504, end: 2015
  6. CAPECITABINE. [Suspect]
     Active Substance: CAPECITABINE
     Indication: METASTASES TO ADRENALS
  7. TEMOZOLOMIDE. [Suspect]
     Active Substance: TEMOZOLOMIDE
     Indication: METASTASES TO CENTRAL NERVOUS SYSTEM
  8. CAPECITABINE. [Suspect]
     Active Substance: CAPECITABINE
     Indication: METASTASES TO BONE
     Dosage: 25% DOSE REDUCTION (1500MILLIGRAM/SQ. METER, ONCE DAILY, DAY 1-14, EVERY 28 DAYS)
     Route: 048
     Dates: start: 2015, end: 2015
  9. CAPECITABINE. [Suspect]
     Active Substance: CAPECITABINE
     Indication: NEUROENDOCRINE BREAST TUMOUR
  10. TEMOZOLOMIDE. [Suspect]
     Active Substance: TEMOZOLOMIDE
     Indication: METASTASES TO BONE
  11. TEMOZOLOMIDE. [Suspect]
     Active Substance: TEMOZOLOMIDE
     Indication: METASTASES TO ADRENALS
     Dosage: 25% DOSE REDUCTION (150 MILLIGRAM/SQ. METER, ONCE DAILY, DAY 10-14, EVERY 28 DAYS)
     Route: 048
     Dates: start: 2015, end: 2015
  12. CAPECITABINE. [Suspect]
     Active Substance: CAPECITABINE
     Indication: METASTASES TO CENTRAL NERVOUS SYSTEM
  13. TEMOZOLOMIDE. [Suspect]
     Active Substance: TEMOZOLOMIDE
     Indication: METASTASES TO LYMPH NODES
     Dosage: 50% DOSE REDUCTION (100 MILLIGRAM/SQ. METER, ONCE DAILY, DAY 10-14, EVERY 28 DAYS)
     Route: 048
     Dates: start: 2015, end: 201601
  14. TEMOZOLOMIDE. [Suspect]
     Active Substance: TEMOZOLOMIDE
     Indication: METASTASES TO LIVER

REACTIONS (3)
  - Cognitive disorder [Unknown]
  - Off label use [Unknown]
  - Thrombocytopenia [Unknown]

NARRATIVE: CASE EVENT DATE: 2015
